FAERS Safety Report 4327745-6 (Version None)
Quarter: 2004Q1

REPORT INFORMATION
  Report Type: 
  Country: None (occurrence: None)
  Receive Date: 20040325
  Receipt Date: 20040319
  Transmission Date: 20041129
  Serious: Yes (Hospitalization)
  Sender: FDA-Public Use
  Company Number: 2004-03-0765

PATIENT
  Age: 62 Year
  Sex: Female

DRUGS (1)
  1. INTRON A [Suspect]
     Indication: HEPATITIS C
     Dosage: 6 MU  TIW
     Dates: start: 20030617, end: 20030719

REACTIONS (5)
  - ABDOMINAL PAIN [None]
  - CHOLANGITIS ACUTE [None]
  - CONDITION AGGRAVATED [None]
  - VOMITING [None]
  - WHITE BLOOD CELL COUNT INCREASED [None]
